FAERS Safety Report 7732821-1 (Version None)
Quarter: 2011Q3

REPORT INFORMATION
  Report Type: 
  Country: None (occurrence: None)
  Receive Date: 20110901
  Receipt Date: 20110818
  Transmission Date: 20111222
  Serious: Yes (Hospitalization, Disabling)
  Sender: FDA-Public Use
  Company Number: AUR-APL-2011-04701

PATIENT
  Age: 67 Year
  Sex: Male
  Weight: 76 kg

DRUGS (7)
  1. ASPIRIN [Concomitant]
  2. FUROSEMIDE [Concomitant]
  3. RAMIPRIL [Concomitant]
  4. TAMULOSIN (TAMSULOSIN) [Concomitant]
  5. SIMVASTATIN [Suspect]
     Indication: HYPERCHOLESTEROLAEMIA
     Dosage: 40 MG (40 MG, 1 IN 1 D), ORAL
     Route: 048
     Dates: start: 20101201
  6. SPORANOX [Suspect]
     Indication: ONYCHOMYCOSIS
     Dosage: 400 MG (200 MG, 2 IN 1 D), ORAL
     Route: 048
     Dates: start: 20110705, end: 20110727
  7. BISOPROLOL FUMARATE [Concomitant]

REACTIONS (3)
  - DRUG INTERACTION [None]
  - MYALGIA [None]
  - MYOSITIS [None]
